FAERS Safety Report 10548712 (Version 1)
Quarter: 2014Q4

REPORT INFORMATION
  Report Type: Spontaneous
  Country: US (occurrence: None)
  Receive Date: 20141027
  Receipt Date: 20141027
  Transmission Date: 20150529
  Serious: Yes (Hospitalization)
  Sender: FDA-Public Use
  Company Number: None

PATIENT
  Age: 3 Year
  Sex: Female
  Weight: 13 kg

DRUGS (5)
  1. VINCRISTINE SULFATE. [Suspect]
     Active Substance: VINCRISTINE SULFATE
  2. DEXAMETHASONE. [Suspect]
     Active Substance: DEXAMETHASONE
  3. ONCASPAR [Suspect]
     Active Substance: PEGASPARGASE
  4. METHOTREXATE [Suspect]
     Active Substance: METHOTREXATE
  5. CYTARABINE. [Suspect]
     Active Substance: CYTARABINE

REACTIONS (17)
  - Fluid overload [None]
  - Septic shock [None]
  - Urosepsis [None]
  - Fatigue [None]
  - Thrombocytopenia [None]
  - Photophobia [None]
  - Anaemia [None]
  - Hypovolaemia [None]
  - Abdominal pain upper [None]
  - Tachycardia [None]
  - Headache [None]
  - Lethargy [None]
  - Diarrhoea [None]
  - Hypotension [None]
  - Disseminated intravascular coagulation [None]
  - Constipation [None]
  - Culture urine positive [None]

NARRATIVE: CASE EVENT DATE: 20140930
